FAERS Safety Report 7468309-5 (Version None)
Quarter: 2011Q2

REPORT INFORMATION
  Report Type: 
  Country: None (occurrence: None)
  Receive Date: 20110509
  Receipt Date: 20101102
  Transmission Date: 20111010
  Serious: Yes (Other)
  Sender: FDA-Public Use
  Company Number: PHEH2006US01431

PATIENT
  Sex: Female

DRUGS (10)
  1. GLEEVEC [Suspect]
     Dosage: 200 MG, QD
     Route: 048
     Dates: start: 20060131
  2. GLEEVEC [Suspect]
     Dosage: 200 MG, DAILY
     Route: 048
     Dates: start: 20081021
  3. GLEEVEC [Suspect]
     Dosage: 200 MG, QD
     Route: 048
     Dates: start: 20081024
  4. GLEEVEC [Suspect]
     Indication: CHRONIC MYELOID LEUKAEMIA
     Dosage: 300 MG, QD
     Route: 048
     Dates: start: 20060111
  5. GLEEVEC [Suspect]
     Dosage: 300 MG, QD
     Route: 048
     Dates: end: 20071016
  6. ZESTRIL [Concomitant]
  7. FLAGYL [Concomitant]
  8. GLEEVEC [Suspect]
     Dosage: 200 MG, QD
     Route: 048
     Dates: start: 20081001, end: 20090403
  9. PLAVIX [Concomitant]
  10. LASIX-K [Concomitant]

REACTIONS (9)
  - VISUAL IMPAIRMENT [None]
  - EYELID OEDEMA [None]
  - RASH [None]
  - JOINT SWELLING [None]
  - MUSCLE SPASMS [None]
  - RASH PRURITIC [None]
  - MACULAR DEGENERATION [None]
  - NAUSEA [None]
  - DYSGEUSIA [None]
